FAERS Safety Report 18471543 (Version 1)
Quarter: 2020Q4

REPORT INFORMATION
  Report Type: Spontaneous
  Country: US (occurrence: US)
  Receive Date: 20201105
  Receipt Date: 20201105
  Transmission Date: 20210114
  Serious: Yes (Death, Other)
  Sender: FDA-Public Use
  Company Number: US-PURDUE-USA-2020-0162002

PATIENT
  Age: 30 Year
  Sex: Female

DRUGS (3)
  1. OXYFAST [Suspect]
     Active Substance: OXYCODONE
     Indication: PAIN
     Dosage: UNK
     Route: 048
  2. OXYCONTIN [Suspect]
     Active Substance: OXYCODONE HYDROCHLORIDE
     Indication: PAIN
     Dosage: UNK
     Route: 048
  3. OXYIR [Suspect]
     Active Substance: OXYCODONE HYDROCHLORIDE
     Indication: PAIN
     Dosage: UNK
     Route: 048

REACTIONS (6)
  - Drug dependence [Unknown]
  - Pain [Unknown]
  - Drug abuse [Unknown]
  - Exposure during pregnancy [Unknown]
  - Overdose [Fatal]
  - Mental disorder [Unknown]

NARRATIVE: CASE EVENT DATE: 20020813
